FAERS Safety Report 10961153 (Version 2)
Quarter: 2015Q1

REPORT INFORMATION
  Report Type: Spontaneous
  Country: US (occurrence: US)
  Receive Date: 20150327
  Receipt Date: 20150330
  Transmission Date: 20150721
  Serious: Yes (Death, Other)
  Sender: FDA-Public Use
  Company Number: PHHY2015US034425

PATIENT
  Age: 15 Year
  Sex: Female

DRUGS (16)
  1. GABAPENTIN. [Suspect]
     Active Substance: GABAPENTIN
     Indication: GENITAL PAIN
  2. PARACETAMOL [Suspect]
     Active Substance: ACETAMINOPHEN
     Indication: PROCTALGIA
     Route: 065
  3. OXYCODONE HYDROCHLORIDE. [Suspect]
     Active Substance: OXYCODONE HYDROCHLORIDE
     Indication: PROCTALGIA
     Route: 065
  4. HYDROMORPHONE [Suspect]
     Active Substance: HYDROMORPHONE
     Indication: ANALGESIC THERAPY
     Route: 048
  5. LORAZEPAM. [Suspect]
     Active Substance: LORAZEPAM
     Indication: ANALGESIC THERAPY
     Route: 065
  6. GABAPENTIN. [Suspect]
     Active Substance: GABAPENTIN
     Indication: PROCTALGIA
     Route: 065
  7. OXYCODONE HYDROCHLORIDE. [Suspect]
     Active Substance: OXYCODONE HYDROCHLORIDE
     Indication: GENITAL PAIN
  8. GRANULOCYTE COLONY STIMULATING FACTOR [Concomitant]
     Active Substance: GRANULOCYTE COLONY-STIMULATING FACTOR NOS
     Indication: NEUTROPHIL COUNT DECREASED
     Route: 065
  9. LIDOCAINE. [Suspect]
     Active Substance: LIDOCAINE
     Indication: PROCTALGIA
     Route: 061
  10. PARACETAMOL [Suspect]
     Active Substance: ACETAMINOPHEN
     Indication: GENITAL PAIN
  11. 5-FLUOROURACIL [Suspect]
     Active Substance: FLUOROURACIL
     Indication: SQUAMOUS CELL CARCINOMA
     Route: 065
  12. IMMUNOGLOBULINS [Concomitant]
     Active Substance: HUMAN IMMUNOGLOBULIN G
     Indication: HYPER IGE SYNDROME
     Route: 042
  13. LIDOCAINE. [Suspect]
     Active Substance: LIDOCAINE
     Indication: GENITAL PAIN
  14. METHADONE [Suspect]
     Active Substance: METHADONE HYDROCHLORIDE
     Indication: ANALGESIC THERAPY
     Route: 065
  15. FENTANYL. [Suspect]
     Active Substance: FENTANYL
     Indication: ANALGESIC THERAPY
     Route: 065
  16. DIAZEPAM. [Suspect]
     Active Substance: DIAZEPAM
     Indication: ANALGESIC THERAPY
     Route: 065

REACTIONS (19)
  - Skin papilloma [Unknown]
  - Tumour ulceration [Unknown]
  - Back pain [Unknown]
  - Drug ineffective [Unknown]
  - Genital pain [Unknown]
  - Somnolence [Unknown]
  - Vomiting [Unknown]
  - Malignant neoplasm progression [Unknown]
  - Arthralgia [Unknown]
  - Groin pain [Unknown]
  - Cancer pain [Unknown]
  - Skin erosion [Unknown]
  - Pain in extremity [Unknown]
  - Squamous cell carcinoma [Unknown]
  - Renal failure [Unknown]
  - Death [Fatal]
  - Proctalgia [Unknown]
  - Nausea [Unknown]
  - Urinary retention [Unknown]
